FAERS Safety Report 18857777 (Version 2)
Quarter: 2021Q1

REPORT INFORMATION
  Report Type: Spontaneous
  Country: US (occurrence: US)
  Receive Date: 20210208
  Receipt Date: 20210303
  Transmission Date: 20210420
  Serious: No
  Sender: FDA-Public Use
  Company Number: US-SA-2021SA038726

PATIENT
  Age: 48 Year
  Sex: Female

DRUGS (1)
  1. DUPIXENT [Suspect]
     Active Substance: DUPILUMAB
     Indication: DERMATITIS ALLERGIC
     Dosage: 300 MG, QOW
     Route: 058
     Dates: start: 2020

REACTIONS (4)
  - Product dose omission issue [Unknown]
  - Injection site pain [Unknown]
  - Dermatitis allergic [Unknown]
  - Eczema [Unknown]

NARRATIVE: CASE EVENT DATE: 202011
